FAERS Safety Report 8978372 (Version 2)
Quarter: 2013Q1

REPORT INFORMATION
  Report Type: Spontaneous
  Country: US (occurrence: US)
  Receive Date: 20121220
  Receipt Date: 20130114
  Transmission Date: 20140127
  Serious: Yes (Disabling)
  Sender: FDA-Public Use
  Company Number: US-PERRIGO-12US010660

PATIENT
  Age: 6 None
  Sex: Male
  Weight: 27.21 kg

DRUGS (8)
  1. TUSSIN PE CF [Suspect]
     Indication: COUGH
     Dosage: 5 ML, PRN
     Route: 048
     Dates: start: 201211
  2. TUSSIN PE CF [Suspect]
     Indication: SEASONAL ALLERGY
  3. VICKS VAPORUB [Suspect]
     Indication: COUGH
     Dosage: UNKNOWN, PRN
     Route: 065
  4. VICKS VAPORUB [Suspect]
     Indication: SEASONAL ALLERGY
  5. ROBITUSSIN DM [Suspect]
     Indication: COUGH
     Dosage: 5 ML, QHS
     Route: 048
  6. ROBITUSSIN DM [Suspect]
     Indication: SEASONAL ALLERGY
  7. SUDAFED [Suspect]
     Indication: COUGH
     Dosage: UNKNOWN, PRN
     Route: 048
  8. SUDAFED [Suspect]
     Indication: SEASONAL ALLERGY

REACTIONS (2)
  - Drug screen positive [Unknown]
  - Off label use [Unknown]
